FAERS Safety Report 25487656 (Version 2)
Quarter: 2025Q3

REPORT INFORMATION
  Report Type: Spontaneous
  Country: TR (occurrence: TR)
  Receive Date: 20250627
  Receipt Date: 20250708
  Transmission Date: 20251021
  Serious: Yes (Life-Threatening, Hospitalization)
  Sender: EMD SERONO INC
  Company Number: TR-Merck Healthcare KGaA-2025031558

PATIENT
  Age: 65 Year
  Sex: Male
  Weight: 70 kg

DRUGS (3)
  1. BAVENCIO [Suspect]
     Active Substance: AVELUMAB
     Indication: Transitional cell carcinoma
     Dates: start: 20250617, end: 20250617
  2. PHENIRAMINE [Concomitant]
     Active Substance: PHENIRAMINE
     Indication: Premedication
  3. PAROL [Concomitant]
     Active Substance: ACETAMINOPHEN
     Indication: Premedication

REACTIONS (1)
  - Anaphylactic reaction [Recovered/Resolved]

NARRATIVE: CASE EVENT DATE: 20250617
